FAERS Safety Report 24591538 (Version 2)
Quarter: 2024Q4

REPORT INFORMATION
  Report Type: Spontaneous
  Country: IT (occurrence: IT)
  Receive Date: 20241108
  Receipt Date: 20241112
  Transmission Date: 20250114
  Serious: Yes (Other)
  Sender: SANOFI AVENTIS
  Company Number: IT-MLMSERVICE-20241025-PI227614-00077-5

PATIENT
  Age: 72 Year
  Sex: Male

DRUGS (3)
  1. OXALIPLATIN [Suspect]
     Active Substance: OXALIPLATIN
     Indication: Colorectal cancer
     Dosage: UNK UNK, QCY
     Dates: end: 202105
  2. CAPECITABINE [Suspect]
     Active Substance: CAPECITABINE
     Indication: Colorectal cancer
     Dosage: PRE-SURGERY
     Dates: start: 202006
  3. CAPECITABINE [Suspect]
     Active Substance: CAPECITABINE
     Dosage: UNK UNK, QCY
     Dates: end: 202105

REACTIONS (4)
  - Acute promyelocytic leukaemia [Recovered/Resolved]
  - Anaemia [Recovered/Resolved]
  - Leukocytosis [Recovered/Resolved]
  - Thrombocytopenia [Recovered/Resolved]

NARRATIVE: CASE EVENT DATE: 20230101
